FAERS Safety Report 4480724-0 (Version None)
Quarter: 2004Q4

REPORT INFORMATION
  Report Type: 
  Country: None (occurrence: None)
  Receive Date: 20041019
  Receipt Date: 20041006
  Transmission Date: 20050328
  Serious: Yes (Other)
  Sender: FDA-Public Use
  Company Number: 2004075214

PATIENT
  Sex: Female
  Weight: 60.3284 kg

DRUGS (6)
  1. DILANTIN [Suspect]
     Indication: CONVULSION
     Dosage: 300 MG (100 MG, 2 IN 1 D)
     Dates: start: 19850101
  2. RANITIDINE [Concomitant]
  3. SIMVASTATIN [Concomitant]
  4. MONTELUKAST SODIUM (MONTELUKAST SODIUM) [Concomitant]
  5. CONJUGATED ESTROGENS [Concomitant]
  6. LOTREL [Concomitant]

REACTIONS (12)
  - BODY HEIGHT DECREASED [None]
  - CEREBROVASCULAR ACCIDENT [None]
  - COUGH [None]
  - DIPLOPIA [None]
  - DRUG LEVEL FLUCTUATING [None]
  - FALL [None]
  - FEELING ABNORMAL [None]
  - HEAD INJURY [None]
  - OSTEOPENIA [None]
  - OSTEOPOROSIS [None]
  - PHARMACEUTICAL PRODUCT COMPLAINT [None]
  - SKIN DISCOLOURATION [None]
